FAERS Safety Report 15273263 (Version 1)
Quarter: 2018Q3

REPORT INFORMATION
  Report Type: Spontaneous
  Country: BR (occurrence: BR)
  Receive Date: 20180813
  Receipt Date: 20180813
  Transmission Date: 20181010
  Serious: Yes (Hospitalization)
  Sender: FDA-Public Use
  Company Number: BR-GALDERMA-BR18028294

PATIENT
  Age: 46 Year
  Sex: Male

DRUGS (1)
  1. CLOBETASOL [Suspect]
     Active Substance: CLOBETASOL
     Indication: PSORIASIS
     Dosage: 0.05% ? OVER 100G/WEEK
     Route: 061

REACTIONS (20)
  - Lipohypertrophy [Not Recovered/Not Resolved]
  - Metabolic syndrome [Not Recovered/Not Resolved]
  - Hypertension [Not Recovered/Not Resolved]
  - Adrenal insufficiency [Not Recovered/Not Resolved]
  - Product use issue [Not Recovered/Not Resolved]
  - Libido decreased [Not Recovered/Not Resolved]
  - Muscular weakness [Not Recovered/Not Resolved]
  - Cataract [Not Recovered/Not Resolved]
  - Asthenia [Not Recovered/Not Resolved]
  - Skin striae [Not Recovered/Not Resolved]
  - Flushing [Not Recovered/Not Resolved]
  - Oedema peripheral [Not Recovered/Not Resolved]
  - Depression [Not Recovered/Not Resolved]
  - Cushing^s syndrome [Not Recovered/Not Resolved]
  - Weight increased [Not Recovered/Not Resolved]
  - Hypothalamic pituitary adrenal axis suppression [Not Recovered/Not Resolved]
  - Cushingoid [Not Recovered/Not Resolved]
  - Intentional overdose [Not Recovered/Not Resolved]
  - Ecchymosis [Not Recovered/Not Resolved]
  - Hepatic steatosis [Not Recovered/Not Resolved]

NARRATIVE: CASE EVENT DATE: 201301
